FAERS Safety Report 9524564 (Version 1)
Quarter: 2013Q3

REPORT INFORMATION
  Report Type: Spontaneous
  Country: US (occurrence: US)
  Receive Date: 20130916
  Receipt Date: 20130916
  Transmission Date: 20140515
  Serious: No
  Sender: FDA-Public Use
  Company Number: US-PFIZER INC-2013265584

PATIENT
  Age: 49 Year
  Sex: Female

DRUGS (3)
  1. GEODON [Suspect]
     Indication: BIPOLAR I DISORDER
     Dosage: UNK
     Route: 048
  2. GEODON [Suspect]
     Dosage: 20 MG, 2X/DAY
     Route: 048
  3. PREMARIN [Concomitant]
     Dosage: UNK

REACTIONS (1)
  - Insomnia [Unknown]
